FAERS Safety Report 7508361-1 (Version None)
Quarter: 2011Q2

REPORT INFORMATION
  Report Type: 
  Country: None (occurrence: None)
  Receive Date: 20110421
  Receipt Date: 20110414
  Transmission Date: 20111010
  Serious: Yes (Other)
  Sender: FDA-Public Use
  Company Number: SPV1-2010-01939

PATIENT
  Sex: Male

DRUGS (2)
  1. CONTROL () [Suspect]
     Dates: start: 20100101
  2. VYVANSE [Suspect]
     Indication: ATTENTION DEFICIT/HYPERACTIVITY DISORDER
     Dosage: 30 MG, 1X/DAY: QD, ORAL
     Route: 048
     Dates: start: 20100101

REACTIONS (1)
  - HYPERTENSION [None]
